FAERS Safety Report 7708542-8 (Version None)
Quarter: 2011Q3

REPORT INFORMATION
  Report Type: 
  Country: None (occurrence: None)
  Receive Date: 20110825
  Receipt Date: 20110816
  Transmission Date: 20111222
  Serious: Yes (Hospitalization, Other)
  Sender: FDA-Public Use
  Company Number: JP-ASTELLAS-2011US005221

PATIENT
  Sex: Female

DRUGS (2)
  1. ERLOTINIB HYDROCHLORIDE [Suspect]
     Indication: PANCREATIC CARCINOMA NON-RESECTABLE
     Dosage: 100 MG, UID/QD
     Route: 048
     Dates: start: 20110719, end: 20110807
  2. GEMCITABINE [Suspect]
     Indication: PANCREATIC CARCINOMA NON-RESECTABLE
     Dosage: UNK
     Route: 065
     Dates: start: 20110719, end: 20110726

REACTIONS (4)
  - PLEURAL EFFUSION [None]
  - HYPOPROTEINAEMIA [None]
  - CHOLANGITIS [None]
  - INTERSTITIAL LUNG DISEASE [None]
